FAERS Safety Report 17820095 (Version 1)
Quarter: 2020Q2

REPORT INFORMATION
  Report Type: Spontaneous
  Country: GB (occurrence: GB)
  Receive Date: 20200525
  Receipt Date: 20200525
  Transmission Date: 20200714
  Serious: Yes (Other)
  Sender: FDA-Public Use
  Company Number: GB-TEVA-2020-GB-1239435

PATIENT
  Age: 23 Year
  Sex: Female

DRUGS (14)
  1. RITUXIMAB. [Suspect]
     Active Substance: RITUXIMAB
     Indication: SYSTEMIC LUPUS ERYTHEMATOSUS
     Dosage: 375 MG/M2 IN 2 DOSES 14 DAYS APART
     Route: 065
     Dates: start: 201510
  2. PREDNISOLONE. [Suspect]
     Active Substance: PREDNISOLONE
     Indication: SYSTEMIC LUPUS ERYTHEMATOSUS
     Dosage: IN JULY 2017 AT THE TIME OF PRESENTATION FOR THE 1ST TIME
     Route: 065
  3. AZATHIOPRINE. [Suspect]
     Active Substance: AZATHIOPRINE
     Indication: SYSTEMIC LUPUS ERYTHEMATOSUS
     Route: 065
     Dates: start: 2011
  4. MYCOPHENOLATE MOFETIL. [Suspect]
     Active Substance: MYCOPHENOLATE MOFETIL
     Indication: SYSTEMIC LUPUS ERYTHEMATOSUS
     Dosage: AFTER AZATHIOPRINE WAS STOPPED; THERAPY STOPPED IN 2018 AFTER 2EN ENTEROVIRUS EVENT
     Route: 065
     Dates: start: 2017, end: 2018
  5. PREDNISOLONE. [Suspect]
     Active Substance: PREDNISOLONE
     Indication: SYSTEMIC LUPUS ERYTHEMATOSUS
     Route: 065
     Dates: start: 2011
  6. PREDNISOLONE. [Suspect]
     Active Substance: PREDNISOLONE
     Indication: SYSTEMIC LUPUS ERYTHEMATOSUS
     Dosage: IN 2018, AT THE TIME OF FLARE OF SLE ADMINISTERED AFTER METHYLPREDNISOLONE
     Route: 048
  7. AZATHIOPRINE. [Suspect]
     Active Substance: AZATHIOPRINE
     Indication: SYSTEMIC LUPUS ERYTHEMATOSUS
     Dosage: IN JULY 2017 AT THE TIME OF PRESENTATION FOR THE 1ST TIME; LATER DISCONTINUED
     Route: 065
     Dates: end: 2017
  8. IMMUNOGLOBULINS NOS [Suspect]
     Active Substance: IMMUNE GLOBULIN NOS
     Indication: SYSTEMIC LUPUS ERYTHEMATOSUS
     Dosage: 2 G/KG
     Route: 042
     Dates: start: 2018
  9. ACICLOVIR [Concomitant]
     Active Substance: ACYCLOVIR
     Route: 042
  10. RITUXIMAB. [Suspect]
     Active Substance: RITUXIMAB
     Indication: SYSTEMIC LUPUS ERYTHEMATOSUS
     Dosage: FIRST DOSE: 2G/KG BODY WEIGHT; SECOND DOSE AFTER 2 WEEKS: 1G INFUSION IN 2 DOSES 14 DAYS APART
     Route: 050
     Dates: start: 2018
  11. CEFTRIAXONE. [Concomitant]
     Active Substance: CEFTRIAXONE
     Route: 042
  12. PREDNISOLONE. [Suspect]
     Active Substance: PREDNISOLONE
     Indication: SYSTEMIC LUPUS ERYTHEMATOSUS
     Dosage: FINAL DOSE AFTER TAPERED DOWN BY 5MG/WEEK
     Route: 048
  13. HYDROXYCHLOROQUINE [Suspect]
     Active Substance: HYDROXYCHLOROQUINE
     Indication: SYSTEMIC LUPUS ERYTHEMATOSUS
     Route: 065
     Dates: start: 2011
  14. METHYLPREDNISOLONE. [Concomitant]
     Active Substance: METHYLPREDNISOLONE
     Indication: SYSTEMIC LUPUS ERYTHEMATOSUS
     Route: 042
     Dates: start: 2018

REACTIONS (3)
  - Off label use [Unknown]
  - Enterovirus infection [Recovered/Resolved]
  - Encephalitis [Recovered/Resolved]
